FAERS Safety Report 15703083 (Version 1)
Quarter: 2018Q4

REPORT INFORMATION
  Report Type: Spontaneous
  Country: US (occurrence: US)
  Receive Date: 20181208
  Receipt Date: 20181208
  Transmission Date: 20190205
  Serious: Yes (Life-Threatening, Hospitalization, Other)
  Sender: FDA-Public Use
  Company Number: None

PATIENT
  Age: 73 Year
  Sex: Male

DRUGS (19)
  1. GABAPENTIN. [Suspect]
     Active Substance: GABAPENTIN
     Route: 048
  2. DONEPEZIL 10 MG [Concomitant]
     Active Substance: DONEPEZIL HYDROCHLORIDE
  3. PRIMIDONE 50 MG [Concomitant]
     Active Substance: PRIMIDONE
  4. PAROXETINE. [Concomitant]
     Active Substance: PAROXETINE
  5. POTASSIUM 10 MEQ [Concomitant]
  6. PRAVASTATIN 40 MG [Concomitant]
     Active Substance: PRAVASTATIN
  7. CLONAZEPAM 1 MG [Concomitant]
     Active Substance: CLONAZEPAM
  8. LINZESS 72 MCG [Concomitant]
  9. MEMANTINE 10 MG [Concomitant]
  10. OMEPRAZOLE 40 MG [Concomitant]
     Active Substance: OMEPRAZOLE
  11. FUROSEMIDE 40 MG [Concomitant]
     Active Substance: FUROSEMIDE
  12. TAMSULOSIN 0.4 [Concomitant]
  13. MELATONIN 5 MG [Concomitant]
  14. PROPRANOLOL 120 [Concomitant]
  15. TIANIDINE 4 MG [Concomitant]
  16. ASPIRIN 81 [Concomitant]
     Active Substance: ASPIRIN
  17. ELIQUIS [Concomitant]
     Active Substance: APIXABAN
  18. MIRTAZAPINE 15 MG [Concomitant]
     Active Substance: MIRTAZAPINE
  19. TOPIRAMATE 200 MG [Concomitant]

REACTIONS (1)
  - Coma [None]

NARRATIVE: CASE EVENT DATE: 20180703
